FAERS Safety Report 4553707-X (Version None)
Quarter: 2005Q1

REPORT INFORMATION
  Report Type: 
  Country: None (occurrence: None)
  Receive Date: 20050114
  Receipt Date: 20050114
  Transmission Date: 20050727
  Serious: Yes (Hospitalization)
  Sender: FDA-Public Use
  Company Number: None

PATIENT
  Sex: Male
  Weight: 66.2252 kg

DRUGS (1)
  1. TEQUIN [Suspect]
     Indication: PNEUMONIA
     Dosage: 400MG DAILY ORAL
     Route: 048
     Dates: start: 20040310, end: 20040320

REACTIONS (2)
  - DIABETIC HYPEROSMOLAR COMA [None]
  - ORAL INTAKE REDUCED [None]
